FAERS Safety Report 24104088 (Version 1)
Quarter: 2024Q3

REPORT INFORMATION
  Report Type: Report from Study
  Country: US (occurrence: None)
  Receive Date: 20240717
  Receipt Date: 20240717
  Transmission Date: 20241017
  Serious: Yes (Hospitalization, Other)
  Sender: ASTRAZENECA
  Company Number: 2020SE25282

PATIENT
  Age: 15953 Day
  Sex: Female

DRUGS (13)
  1. TAGRISSO [Suspect]
     Active Substance: OSIMERTINIB
     Indication: Lung neoplasm malignant
     Route: 048
     Dates: start: 201906
  2. ZYRTEC [Concomitant]
     Active Substance: CETIRIZINE HYDROCHLORIDE
     Route: 065
  3. FLONASE ALLERGY RELIEF [Concomitant]
     Active Substance: FLUTICASONE PROPIONATE
     Route: 065
  4. LISINOPRIL [Concomitant]
     Active Substance: LISINOPRIL
     Route: 065
  5. OXYCODONE HYDROCHLORIDE [Concomitant]
     Active Substance: OXYCODONE HYDROCHLORIDE
     Route: 065
  6. SENNA-S [Concomitant]
     Active Substance: DOCUSATE SODIUM\SENNOSIDES
     Route: 065
  7. PROCHLORPERAZINE MALEATE [Concomitant]
     Active Substance: PROCHLORPERAZINE MALEATE
     Route: 065
  8. PROBIOTIC COMPLEX [Concomitant]
     Route: 065
  9. FUROSEMIDE [Concomitant]
     Active Substance: FUROSEMIDE
     Route: 065
  10. KEPPRA [Concomitant]
     Active Substance: LEVETIRACETAM
     Route: 065
  11. LEVOTHYROXINE SODIUM [Concomitant]
     Active Substance: LEVOTHYROXINE SODIUM
     Route: 065
  12. DOXEPIN HYDROCHLORIDE [Concomitant]
     Active Substance: DOXEPIN HYDROCHLORIDE
     Route: 065
  13. MELATONIN [Concomitant]
     Active Substance: MELATONIN
     Route: 065

REACTIONS (12)
  - Fall [Unknown]
  - Pneumonia [Unknown]
  - Bedridden [Unknown]
  - Urinary tract infection [Unknown]
  - Cerebral haemorrhage [Unknown]
  - Visual impairment [Unknown]
  - Dehydration [Unknown]
  - Vomiting [Unknown]
  - Oral candidiasis [Unknown]
  - Fatigue [Unknown]
  - Decreased appetite [Unknown]
  - Hypophagia [Unknown]

NARRATIVE: CASE EVENT DATE: 20200210
